FAERS Safety Report 9739381 (Version 1)
Quarter: 2013Q4

REPORT INFORMATION
  Report Type: Spontaneous
  Country: GR (occurrence: GR)
  Receive Date: 20131209
  Receipt Date: 20131209
  Transmission Date: 20140711
  Serious: Yes (Other)
  Sender: FDA-Public Use
  Company Number: GR-TEVA-448774ISR

PATIENT
  Age: 48 Year
  Sex: Female

DRUGS (4)
  1. EPIRUBICIN/PHARMACHEMIE [Suspect]
  2. OXALIPLATIN/TEVA [Suspect]
  3. XELODA [Suspect]
  4. ZOMETA [Suspect]

REACTIONS (4)
  - Retinal detachment [Unknown]
  - Photopsia [Unknown]
  - Vision blurred [Unknown]
  - Visual acuity reduced [Unknown]
